FAERS Safety Report 7704166-7 (Version None)
Quarter: 2011Q3

REPORT INFORMATION
  Report Type: 
  Country: None (occurrence: None)
  Receive Date: 20110823
  Receipt Date: 20110811
  Transmission Date: 20111222
  Serious: Yes (Hospitalization)
  Sender: FDA-Public Use
  Company Number: US-ACTELION-A-NJ2011-50747

PATIENT

DRUGS (2)
  1. COUMADIN [Concomitant]
  2. TRACLEER [Suspect]
     Indication: PULMONARY ARTERIAL HYPERTENSION
     Dosage: UNK
     Route: 048
     Dates: start: 20090204

REACTIONS (6)
  - SYNCOPE [None]
  - PULMONARY ARTERIAL HYPERTENSION [None]
  - ABDOMINAL DISTENSION [None]
  - EPISTAXIS [None]
  - DYSPNOEA [None]
  - OEDEMA PERIPHERAL [None]
